FAERS Safety Report 17445510 (Version 1)
Quarter: 2020Q1

REPORT INFORMATION
  Report Type: Spontaneous
  Country: CA (occurrence: CA)
  Receive Date: 20200221
  Receipt Date: 20200221
  Transmission Date: 20200409
  Serious: Yes (Other)
  Sender: FDA-Public Use
  Company Number: CA-PFIZER INC-2020077585

PATIENT
  Sex: Female

DRUGS (3)
  1. CABERGOLINE. [Suspect]
     Active Substance: CABERGOLINE
     Dosage: 1 MG, UNK [ 1 EVERY 2 WEEKS]
     Route: 065
  2. SANDOSTATIN [Suspect]
     Active Substance: OCTREOTIDE ACETATE
     Dosage: 30 MG, MONTHLY
     Route: 030
  3. SIGNIFOR LAR [Suspect]
     Active Substance: PASIREOTIDE PAMOATE
     Indication: RHEUMATOID ARTHRITIS
     Dosage: 60 MG, MONTHLY
     Route: 030

REACTIONS (4)
  - Type 2 diabetes mellitus [Unknown]
  - Off label use [Unknown]
  - Condition aggravated [Unknown]
  - Product use in unapproved indication [Unknown]
